FAERS Safety Report 4510460-3 (Version None)
Quarter: 2004Q4

REPORT INFORMATION
  Report Type: 
  Country: None (occurrence: None)
  Receive Date: 20041124
  Receipt Date: 20041112
  Transmission Date: 20050328
  Serious: Yes (Hospitalization)
  Sender: FDA-Public Use
  Company Number: FR-GLAXOSMITHKLINE-B0351046A

PATIENT
  Age: 46 Year
  Sex: Male

DRUGS (6)
  1. DEROXAT [Suspect]
     Indication: ILL-DEFINED DISORDER
     Dosage: 20MG PER DAY
     Route: 048
  2. ACETAMINOPHEN [Suspect]
     Indication: ILL-DEFINED DISORDER
     Dosage: 4UNIT PER DAY
     Route: 048
  3. NEXEN [Suspect]
     Indication: ILL-DEFINED DISORDER
     Route: 048
     Dates: start: 20041009
  4. VIOXX [Suspect]
     Indication: ILL-DEFINED DISORDER
     Dosage: 1UNIT PER DAY
     Route: 048
     Dates: end: 20041008
  5. TOPALGIC ( FRANCE ) [Suspect]
     Indication: ILL-DEFINED DISORDER
     Dosage: 2UNIT PER DAY
     Route: 048
  6. ART [Suspect]
     Indication: ILL-DEFINED DISORDER
     Dosage: 50MG PER DAY
     Route: 048

REACTIONS (5)
  - ABDOMINAL PAIN [None]
  - BLOOD ALKALINE PHOSPHATASE INCREASED [None]
  - BLOOD AMYLASE INCREASED [None]
  - GAMMA-GLUTAMYLTRANSFERASE INCREASED [None]
  - PANCREATITIS NECROTISING [None]
